FAERS Safety Report 15101211 (Version 4)
Quarter: 2019Q1

REPORT INFORMATION
  Report Type: Spontaneous
  Country: FR (occurrence: FR)
  Receive Date: 20180703
  Receipt Date: 20190207
  Transmission Date: 20190417
  Serious: Yes (Death, Other)
  Sender: FDA-Public Use
  Company Number: FR-MYLANLABS-2018M1047062

PATIENT
  Age: 16 Year
  Sex: Male

DRUGS (26)
  1. TEMOZOLOMIDE. [Suspect]
     Active Substance: TEMOZOLOMIDE
     Dosage: UNK
     Route: 048
     Dates: end: 201212
  2. IRINOTECAN [Suspect]
     Active Substance: IRINOTECAN
     Indication: METASTASES TO BONE
     Dosage: UNK
  3. BUSULFAN. [Suspect]
     Active Substance: BUSULFAN
     Indication: METASTASES TO BONE MARROW
     Dosage: UNK
  4. BUSULFAN. [Suspect]
     Active Substance: BUSULFAN
     Indication: METASTASES TO BONE
  5. MORPHINE [Concomitant]
     Active Substance: MORPHINE
     Indication: PAIN
     Dosage: UNK
     Route: 065
  6. CELECOXIB. [Suspect]
     Active Substance: CELECOXIB
     Dosage: UNK
     Route: 065
  7. CARBOPLATIN. [Suspect]
     Active Substance: CARBOPLATIN
     Indication: METASTASES TO BONE MARROW
     Dosage: UNK
     Route: 065
  8. SONIDEGIB [Suspect]
     Active Substance: SONIDEGIB
     Dosage: 800 MILLIGRAM, QD
     Route: 065
     Dates: start: 20161102
  9. TEMOZOLOMIDE. [Suspect]
     Active Substance: TEMOZOLOMIDE
     Indication: MEDULLOBLASTOMA RECURRENT
     Dosage: 200 MG/M2, DAILY
     Route: 048
     Dates: end: 201608
  10. TEMOZOLOMIDE. [Suspect]
     Active Substance: TEMOZOLOMIDE
     Dosage: UNK
     Route: 065
  11. TEMOZOLOMIDE. [Suspect]
     Active Substance: TEMOZOLOMIDE
     Dosage: UNK
     Route: 048
  12. SONIDEGIB [Suspect]
     Active Substance: SONIDEGIB
     Indication: MEDULLOBLASTOMA RECURRENT
     Dosage: 400 MILLIGRAM, QD
     Route: 065
  13. SONIDEGIB [Suspect]
     Active Substance: SONIDEGIB
     Dosage: 400 MILLIGRAM, QD
     Route: 065
     Dates: start: 20160909
  14. TEMOZOLOMIDE. [Suspect]
     Active Substance: TEMOZOLOMIDE
     Indication: METASTASES TO BONE
     Dosage: 150 MG/M2, DAILY, FIRST CYCLE
     Route: 048
  15. TEMOZOLOMIDE. [Suspect]
     Active Substance: TEMOZOLOMIDE
     Dosage: UNK
     Route: 065
     Dates: end: 201212
  16. ETOPOSIDE. [Suspect]
     Active Substance: ETOPOSIDE
     Indication: METASTASES TO BONE MARROW
     Dosage: UNK
     Route: 065
  17. ITRACONAZOLE. [Suspect]
     Active Substance: ITRACONAZOLE
     Indication: MEDULLOBLASTOMA RECURRENT
     Dosage: 150 MG, BID
     Route: 065
     Dates: start: 201510
  18. IRINOTECAN [Suspect]
     Active Substance: IRINOTECAN
     Indication: METASTASES TO BONE MARROW
     Dosage: UNK
     Route: 065
  19. ETOPOSIDE. [Suspect]
     Active Substance: ETOPOSIDE
     Indication: METASTASES TO BONE
     Dosage: UNK
     Route: 065
     Dates: end: 201212
  20. CELECOXIB. [Suspect]
     Active Substance: CELECOXIB
     Indication: PRODUCT USED FOR UNKNOWN INDICATION
     Dosage: UNK
     Route: 065
     Dates: end: 201212
  21. CYCLOPHOSPHAMIDE. [Suspect]
     Active Substance: CYCLOPHOSPHAMIDE
     Indication: METASTASES TO BONE MARROW
     Dosage: UNK
     Route: 065
     Dates: end: 201212
  22. CISPLATIN. [Suspect]
     Active Substance: CISPLATIN
     Indication: METASTASES TO BONE MARROW
     Dosage: UNK
     Route: 065
  23. VISMODEGIB. [Suspect]
     Active Substance: VISMODEGIB
     Indication: MEDULLOBLASTOMA RECURRENT
     Dosage: 150 MILLIGRAM, QD
     Route: 048
     Dates: start: 20150128
  24. CISPLATIN. [Suspect]
     Active Substance: CISPLATIN
     Indication: METASTASES TO BONE
     Dosage: UNK
  25. CARBOPLATIN. [Suspect]
     Active Substance: CARBOPLATIN
     Indication: METASTASES TO BONE
     Dosage: UNK
  26. CYCLOPHOSPHAMIDE. [Suspect]
     Active Substance: CYCLOPHOSPHAMIDE
     Indication: METASTASES TO BONE
     Dosage: UNK
     Route: 065

REACTIONS (16)
  - Disease recurrence [Unknown]
  - Muscle spasms [Unknown]
  - Pain [Unknown]
  - Paraparesis [Unknown]
  - Urinary retention [Unknown]
  - Blood creatine phosphokinase increased [Unknown]
  - Hypoaesthesia [Unknown]
  - Dysgeusia [Unknown]
  - Disease progression [Fatal]
  - Drug ineffective [Unknown]
  - Drug effect incomplete [Unknown]
  - C-reactive protein increased [Unknown]
  - Acquired gene mutation [Unknown]
  - Alopecia [Unknown]
  - Vomiting [Unknown]
  - Diarrhoea [Unknown]

NARRATIVE: CASE EVENT DATE: 20161102
